FAERS Safety Report 12912417 (Version 2)
Quarter: 2017Q1

REPORT INFORMATION
  Report Type: Spontaneous
  Country: US (occurrence: US)
  Receive Date: 20161104
  Receipt Date: 20170308
  Transmission Date: 20170428
  Serious: No
  Sender: FDA-Public Use
  Company Number: US-TEVA-701962USA

PATIENT
  Age: 44 Year
  Sex: Male

DRUGS (4)
  1. LEXAPRO [Concomitant]
     Active Substance: ESCITALOPRAM OXALATE
  2. LORAZEPAM. [Concomitant]
     Active Substance: LORAZEPAM
  3. NORCO [Concomitant]
     Active Substance: ACETAMINOPHEN\HYDROCODONE BITARTRATE
  4. COPAXONE [Suspect]
     Active Substance: GLATIRAMER ACETATE
     Dosage: FORM STRENGTH: UNKNOWN
     Route: 065

REACTIONS (9)
  - Feeling abnormal [Recovered/Resolved]
  - Incorrect route of drug administration [Unknown]
  - Feeling hot [Unknown]
  - Injection site haemorrhage [Recovered/Resolved]
  - Spinal osteoarthritis [Unknown]
  - Urticaria [Not Recovered/Not Resolved]
  - Dizziness [Recovered/Resolved]
  - Injection site reaction [Unknown]
  - Pruritus [Recovered/Resolved]

NARRATIVE: CASE EVENT DATE: 20160907
